FAERS Safety Report 7912481-7 (Version None)
Quarter: 2011Q4

REPORT INFORMATION
  Report Type: 
  Country: None (occurrence: None)
  Receive Date: 20111114
  Receipt Date: 20111111
  Transmission Date: 20120403
  Serious: No
  Sender: FDA-Public Use
  Company Number: US-PFIZER INC-2011277381

PATIENT
  Sex: Male
  Weight: 74.8 kg

DRUGS (6)
  1. SEROQUEL [Suspect]
     Indication: SLEEP DISORDER
     Dosage: UNK
  2. UNISOM [Suspect]
     Indication: SLEEP DISORDER
     Dosage: UNK
  3. WELLBUTRIN [Suspect]
     Indication: SLEEP DISORDER
     Dosage: UNK
  4. ZYPREXA [Suspect]
     Indication: SLEEP DISORDER
     Dosage: UNK
  5. XANAX [Suspect]
     Indication: SLEEP DISORDER
     Dosage: UNK, AS NEEDED
  6. AMBIEN [Suspect]
     Indication: SLEEP DISORDER
     Dosage: UNK

REACTIONS (1)
  - DRUG INEFFECTIVE [None]
